FAERS Safety Report 9521286 (Version 1)
Quarter: 2013Q3

REPORT INFORMATION
  Report Type: Spontaneous
  Country: US (occurrence: US)
  Receive Date: 20130913
  Receipt Date: 20130913
  Transmission Date: 20140515
  Serious: No
  Sender: FDA-Public Use
  Company Number: US-PFIZER INC-2013260311

PATIENT
  Age: 68 Year
  Sex: Male

DRUGS (10)
  1. CALAN [Suspect]
     Dosage: UNK
  2. LOPID [Suspect]
     Dosage: UNK
  3. HYZAAR [Suspect]
     Dosage: UNK
  4. COREG [Suspect]
     Dosage: UNK
  5. NEXIUM [Suspect]
     Dosage: UNK
  6. CLOXACILLIN [Suspect]
     Dosage: UNK
  7. WELLBUTRIN [Suspect]
     Dosage: UNK
  8. NIASPAN [Suspect]
     Dosage: UNK
  9. ASPIRIN [Suspect]
     Dosage: UNK
  10. PRAVASTATIN [Suspect]
     Dosage: UNK

REACTIONS (1)
  - Drug hypersensitivity [Unknown]
